FAERS Safety Report 21416676 (Version 1)
Quarter: 2022Q4

REPORT INFORMATION
  Report Type: Spontaneous
  Country: US (occurrence: US)
  Receive Date: 20221006
  Receipt Date: 20221006
  Transmission Date: 20230112
  Serious: No
  Sender: FDA-Public Use
  Company Number: US-PERRIGO-22US005120

PATIENT
  Sex: Female

DRUGS (1)
  1. DIMETHICONE\LOPERAMIDE HYDROCHLORIDE [Suspect]
     Active Substance: DIMETHICONE\LOPERAMIDE HYDROCHLORIDE
     Indication: Muscle spasms
     Dosage: 3 TABLETS, SINGLE
     Route: 048
     Dates: start: 20220404, end: 20220404

REACTIONS (2)
  - Therapeutic product effect incomplete [Unknown]
  - Wrong technique in product usage process [Recovered/Resolved]

NARRATIVE: CASE EVENT DATE: 20220404
